FAERS Safety Report 4653776-2 (Version None)
Quarter: 2005Q2

REPORT INFORMATION
  Report Type: 
  Country: None (occurrence: None)
  Receive Date: 20050504
  Receipt Date: 20050420
  Transmission Date: 20051028
  Serious: Yes (Disabling, Other)
  Sender: FDA-Public Use
  Company Number: 2005063258

PATIENT
  Age: 58 Year
  Sex: Female
  Weight: 209 kg

DRUGS (13)
  1. CELEBREX [Suspect]
     Indication: OSTEOARTHRITIS
     Dosage: 400 MG (200 MG, 2 IN 1 D), ORAL
     Route: 048
     Dates: start: 20020101
  2. CELEBREX [Suspect]
     Indication: SYSTEMIC LUPUS ERYTHEMATOSUS
     Dosage: 400 MG (200 MG, 2 IN 1 D), ORAL
     Route: 048
     Dates: start: 20020101
  3. BEXTRA [Suspect]
     Indication: OSTEOARTHRITIS
     Dosage: 10 MG (10 MG,1 IN 1 D), ORAL
     Route: 048
  4. BEXTRA [Suspect]
     Indication: SYSTEMIC LUPUS ERYTHEMATOSUS
     Dosage: 10 MG (10 MG,1 IN 1 D), ORAL
     Route: 048
  5. ROFECOXIB [Suspect]
     Indication: OSTEOARTHRITIS
     Dosage: ORAL
     Route: 048
     Dates: start: 20030101, end: 20030101
  6. ROFECOXIB [Suspect]
     Indication: SYSTEMIC LUPUS ERYTHEMATOSUS
     Dosage: ORAL
     Route: 048
     Dates: start: 20030101, end: 20030101
  7. TELMISARTAN (TELMISARTAN) [Suspect]
     Indication: ANGINA PECTORIS
     Dosage: ORAL
     Route: 048
  8. PROVELLA-14 (ESTROGENS CONJUGATED, MEDROXYPROGESTERONE ACETATE) [Concomitant]
  9. METFORMIN HCL [Concomitant]
  10. CETIRIZINE HCL [Concomitant]
  11. ALPRAZOLAM [Concomitant]
  12. PROPACET 100 [Concomitant]
  13. METOPROLOL TARTRATE [Concomitant]

REACTIONS (9)
  - ANGINA PECTORIS [None]
  - CHEST PAIN [None]
  - DRUG HYPERSENSITIVITY [None]
  - DRUG INEFFECTIVE [None]
  - DYSPNOEA [None]
  - DYSSTASIA [None]
  - LABORATORY TEST ABNORMAL [None]
  - PAIN [None]
  - PERICARDITIS [None]
